FAERS Safety Report 19652799 (Version 1)
Quarter: 2021Q3

REPORT INFORMATION
  Report Type: Spontaneous
  Country: FR (occurrence: FR)
  Receive Date: 20210803
  Receipt Date: 20210803
  Transmission Date: 20211014
  Serious: Yes (Other)
  Sender: FDA-Public Use
  Company Number: FR-MYLANLABS-2021M1047231

PATIENT
  Age: 82 Year
  Sex: Female

DRUGS (5)
  1. ARTEX /00735202/ [Interacting]
     Active Substance: TERTATOLOL HYDROCHLORIDE
     Indication: HYPERTENSION
     Dosage: 5 MILLIGRAM, QD
     Route: 048
     Dates: end: 20210128
  2. ARTEX /00735202/ [Interacting]
     Active Substance: TERTATOLOL HYDROCHLORIDE
     Dosage: 2.5 MILLIGRAM, QD
     Route: 048
     Dates: start: 20210129
  3. INDAPAMIDE. [Suspect]
     Active Substance: INDAPAMIDE
     Indication: HYPERTENSION
     Dosage: 1 DOSAGE FORM, QD (1 DF, QD)
     Route: 048
     Dates: start: 20201215
  4. LEXOMIL [Concomitant]
     Active Substance: BROMAZEPAM
     Indication: ANXIETY
     Dosage: 0.5 MILLIGRAM, QD (0.25 MG, BID)
     Route: 048
  5. LERCAN [Concomitant]
     Active Substance: LERCANIDIPINE
     Indication: HYPERTENSION
     Dosage: 20 MG, QD
     Route: 048

REACTIONS (5)
  - Drug interaction [Recovered/Resolved]
  - Diarrhoea [Not Recovered/Not Resolved]
  - Blood pressure decreased [Recovered/Resolved]
  - Hyperkalaemia [Recovered/Resolved]
  - Abdominal pain [Not Recovered/Not Resolved]

NARRATIVE: CASE EVENT DATE: 20201215
